FAERS Safety Report 17214863 (Version 1)
Quarter: 2019Q4

REPORT INFORMATION
  Report Type: Spontaneous
  Country: GB (occurrence: GB)
  Receive Date: 20191230
  Receipt Date: 20191230
  Transmission Date: 20200122
  Serious: Yes (Death, Other)
  Sender: FDA-Public Use
  Company Number: GB-JNJFOC-20191243133

PATIENT
  Age: 14 Year
  Sex: Female

DRUGS (15)
  1. FLUCONAZOLE. [Suspect]
     Active Substance: FLUCONAZOLE
     Indication: ACUTE LYMPHOCYTIC LEUKAEMIA
     Route: 048
     Dates: start: 20000429, end: 20000503
  2. VINCRISTINE SULFATE. [Suspect]
     Active Substance: VINCRISTINE SULFATE
     Indication: ACUTE LYMPHOCYTIC LEUKAEMIA
     Dosage: DRUG START PERIOD 57 (DAYS), DRUG LAST PERIOD 4 (DAYS)
     Route: 042
     Dates: start: 20000414, end: 20000606
  3. ASPARAGINASE [Suspect]
     Active Substance: ASPARAGINASE
     Indication: ACUTE LYMPHOCYTIC LEUKAEMIA
     Dosage: DRUG START PERIOD 46 (DAYS), DRUG LAST PERIOD 4 (DAYS)
     Route: 042
     Dates: start: 20000425, end: 20000606
  4. ACICLOVIR [Suspect]
     Active Substance: ACYCLOVIR
     Indication: ACUTE LYMPHOCYTIC LEUKAEMIA
     Dosage: DRUG START PERIOD 43 (DAYS), DRUG LAST PERIOD 39 (DAYS)
     Route: 048
     Dates: start: 20000428, end: 20000502
  5. DEXAMETHASONE SODIUM PHOSPHATE. [Suspect]
     Active Substance: DEXAMETHASONE SODIUM PHOSPHATE
     Indication: ACUTE LYMPHOCYTIC LEUKAEMIA
     Dosage: DRUG START PERIOD 4 (DAYS)
     Route: 048
     Dates: start: 20000606, end: 20000610
  6. SULFAMETHOXAZOLE W/TRIMETHOPRIM [Suspect]
     Active Substance: SULFAMETHOXAZOLE\TRIMETHOPRIM
     Indication: ACUTE LYMPHOCYTIC LEUKAEMIA
     Dosage: DRUG START PERIOD 18 (DAYS),
     Route: 048
     Dates: start: 20000523, end: 20000610
  7. HYDROCORTISONE. [Suspect]
     Active Substance: HYDROCORTISONE
     Indication: ACUTE LYMPHOCYTIC LEUKAEMIA
     Dosage: DRUG START PERIOD 30 (DAYS)
     Route: 042
     Dates: start: 20000511
  8. ALLOPURINOL. [Suspect]
     Active Substance: ALLOPURINOL
     Indication: ACUTE LYMPHOCYTIC LEUKAEMIA
     Dosage: DRUG START PERIOD 58 (DAYS),  DRUG LAST PERIOD 53 (DAYS)
     Route: 048
     Dates: start: 20000413, end: 20000418
  9. CHLORPHENIRAMINE                   /00072501/ [Suspect]
     Active Substance: CHLORPHENIRAMINE
     Indication: ACUTE LYMPHOCYTIC LEUKAEMIA
     Dosage: DRUG START PERIOD 30 (DAYS) , DRUG LAST PERIOD 29 (DAYS)
     Route: 042
     Dates: start: 20000511, end: 20000512
  10. FLUCLOXACILLIN [Suspect]
     Active Substance: FLUCLOXACILLIN
     Indication: ACUTE LYMPHOCYTIC LEUKAEMIA
     Dosage: DRUG START PERIOD 43 (DAYS)
     Route: 042
     Dates: start: 20000428
  11. METHOTREXATE SODIUM. [Suspect]
     Active Substance: METHOTREXATE SODIUM
     Indication: ACUTE LYMPHOCYTIC LEUKAEMIA
     Dosage: DRUG START PERIOD 57 (DAYS), DRUG LAST PERIOD 30 (DAYS)
     Route: 037
     Dates: start: 20000414, end: 20000511
  12. PARACETAMOL [Suspect]
     Active Substance: ACETAMINOPHEN
     Indication: ACUTE LYMPHOCYTIC LEUKAEMIA
     Dosage: DRUG START PERIOD 43 (DAYS),  DRUG LAST PERIOD 39 (DAYS)
     Route: 048
     Dates: start: 20000428, end: 20000502
  13. CEFTAZIDIME. [Suspect]
     Active Substance: CEFTAZIDIME
     Indication: ACUTE LYMPHOCYTIC LEUKAEMIA
     Dosage: DRUG START PERIOD 43 (DAYS)
     Route: 042
     Dates: start: 20000428
  14. ETOPOSIDE. [Suspect]
     Active Substance: ETOPOSIDE
     Indication: ACUTE LYMPHOCYTIC LEUKAEMIA
     Dosage: DRUG START PERIOD 18 (DAYS), DRUG LAST PERIOD 8 (DAYS)
     Route: 042
     Dates: start: 20000523, end: 20000602
  15. RANITIDINE. [Suspect]
     Active Substance: RANITIDINE
     Indication: ACUTE LYMPHOCYTIC LEUKAEMIA
     Dosage: DRUG START PERIOD 4 (DAYS)
     Route: 048
     Dates: start: 20000606, end: 20000610

REACTIONS (7)
  - Respiratory tract haemorrhage [Fatal]
  - Off label use [Unknown]
  - Cytopenia [Unknown]
  - Pulmonary haemorrhage [Fatal]
  - Drug ineffective for unapproved indication [Fatal]
  - Condition aggravated [Unknown]
  - Staphylococcal infection [Unknown]

NARRATIVE: CASE EVENT DATE: 2000
